FAERS Safety Report 24713453 (Version 1)
Quarter: 2024Q4

REPORT INFORMATION
  Report Type: Spontaneous
  Country: US (occurrence: US)
  Receive Date: 20241209
  Receipt Date: 20241209
  Transmission Date: 20250115
  Serious: No
  Sender: SANOFI AVENTIS
  Company Number: US-SA-2024SA362623

PATIENT
  Age: 54 Year
  Sex: Female

DRUGS (1)
  1. DUPIXENT [Suspect]
     Active Substance: DUPILUMAB
     Indication: Dermatitis atopic
     Dosage: 600 MG, 1X
     Route: 058
     Dates: start: 20241121, end: 20241121

REACTIONS (8)
  - Feeling abnormal [Unknown]
  - Cough [Unknown]
  - Productive cough [Unknown]
  - Dry skin [Unknown]
  - Rash erythematous [Not Recovered/Not Resolved]
  - Burning sensation [Unknown]
  - Pruritus [Recovering/Resolving]
  - Rash [Unknown]

NARRATIVE: CASE EVENT DATE: 20241101
